FAERS Safety Report 5489338-7 (Version None)
Quarter: 2007Q4

REPORT INFORMATION
  Report Type: 
  Country: None (occurrence: None)
  Receive Date: 20071005
  Receipt Date: 20070604
  Transmission Date: 20080405
  Serious: No
  Sender: FDA-Public Use
  Company Number: PHEH2007US08318

PATIENT
  Age: 68 Year
  Sex: Male

DRUGS (3)
  1. TEKTURNA [Suspect]
     Indication: HYPERTENSION
     Dosage: 300 MG, QD, ORAL
     Route: 048
     Dates: start: 20070525
  2. DIURETICS (NO INGREDIENTS/SUBSTANCES) [Concomitant]
  3. ANTIHYPERTENSIVE DRUGS (NO INGREDIENTS/SUBSTANCES) [Concomitant]

REACTIONS (1)
  - POLLAKIURIA [None]
